FAERS Safety Report 6434007-X (Version None)
Quarter: 2009Q4

REPORT INFORMATION
  Report Type: 
  Country: None (occurrence: None)
  Receive Date: 20091109
  Receipt Date: 20091109
  Transmission Date: 20100525
  Serious: Yes (Life-Threatening, Hospitalization)
  Sender: FDA-Public Use
  Company Number: None

PATIENT
  Age: 74 Year
  Sex: Male
  Weight: 82.5547 kg

DRUGS (1)
  1. LUPRON [Suspect]
     Indication: PROSTATIC SPECIFIC ANTIGEN INCREASED
     Dosage: 1 MONTH DOSE NEEDLE

REACTIONS (7)
  - AMNESIA [None]
  - CONFUSIONAL STATE [None]
  - CONVULSION [None]
  - DIZZINESS [None]
  - HEART RATE ABNORMAL [None]
  - MEMORY IMPAIRMENT [None]
  - TACHYCARDIA [None]
